FAERS Safety Report 13403144 (Version 1)
Quarter: 2017Q2

REPORT INFORMATION
  Report Type: Spontaneous
  Country: US (occurrence: US)
  Receive Date: 20170404
  Receipt Date: 20170404
  Transmission Date: 20170830
  Serious: Yes (Hospitalization)
  Sender: FDA-Public Use
  Company Number: None

PATIENT
  Age: 77 Year
  Sex: Male
  Weight: 94.3 kg

DRUGS (19)
  1. NITROGLYCERIN. [Concomitant]
     Active Substance: NITROGLYCERIN
  2. SPIRONOLACTONE. [Concomitant]
     Active Substance: SPIRONOLACTONE
  3. ZINC. [Concomitant]
     Active Substance: ZINC
  4. VICODIN [Concomitant]
     Active Substance: ACETAMINOPHEN\HYDROCODONE BITARTRATE
  5. LOSARTAN. [Concomitant]
     Active Substance: LOSARTAN
  6. METOPROLOL. [Concomitant]
     Active Substance: METOPROLOL
  7. OMEGA 3 [Concomitant]
     Active Substance: OMEGA-3 FATTY ACIDS
  8. COENZYME Q 10 [Concomitant]
  9. ADA [Concomitant]
  10. DOCUSATE [Concomitant]
     Active Substance: DOCUSATE
  11. MILK THISTLE [Concomitant]
     Active Substance: MILK THISTLE
  12. L-CARNITINE [Concomitant]
     Active Substance: LEVOCARNITINE
  13. ASCORBIC ACID. [Concomitant]
     Active Substance: ASCORBIC ACID
  14. MELATONIN [Concomitant]
     Active Substance: MELATONIN
  15. ENZALUTAMIDE 40 MG (160 PO QD) [Suspect]
     Active Substance: ENZALUTAMIDE
     Indication: PROSTATE CANCER
     Route: 048
     Dates: start: 20170314, end: 20170331
  16. LOVENOX [Concomitant]
     Active Substance: ENOXAPARIN SODIUM
  17. MAGNESIUM 425 [Concomitant]
  18. L-ACIDOPHILUS [Concomitant]
  19. B-RIBONUCLEIC ACID [Concomitant]

REACTIONS (2)
  - Presyncope [None]
  - Dizziness [None]

NARRATIVE: CASE EVENT DATE: 20170331
